FAERS Safety Report 24049318 (Version 3)
Quarter: 2024Q3

REPORT INFORMATION
  Report Type: Spontaneous
  Country: US (occurrence: US)
  Receive Date: 20240704
  Receipt Date: 20240917
  Transmission Date: 20241017
  Serious: Yes (Other)
  Sender: GILEAD
  Company Number: US-GILEAD-2024-0679445

PATIENT
  Age: 42 Year
  Sex: Female

DRUGS (2)
  1. TRUVADA [Suspect]
     Active Substance: EMTRICITABINE\TENOFOVIR DISOPROXIL FUMARATE
     Indication: HIV infection
     Dosage: UNK
     Route: 048
     Dates: start: 20120402, end: 20170731
  2. SYMTUZA [Concomitant]
     Active Substance: COBICISTAT\DARUNAVIR\EMTRICITABINE\TENOFOVIR ALAFENAMIDE

REACTIONS (2)
  - Multiple fractures [Not Recovered/Not Resolved]
  - Tooth extraction [Not Recovered/Not Resolved]

NARRATIVE: CASE EVENT DATE: 20210205
